FAERS Safety Report 9477246 (Version 1)
Quarter: 2013Q3

REPORT INFORMATION
  Report Type: Spontaneous
  Country: US (occurrence: US)
  Receive Date: 20130826
  Receipt Date: 20130826
  Transmission Date: 20140515
  Serious: No
  Sender: FDA-Public Use
  Company Number: US-TEVA-426781USA

PATIENT
  Age: 26 Year
  Sex: Female
  Weight: 94.43 kg

DRUGS (2)
  1. PARAGARD 380A [Suspect]
     Indication: CONTRACEPTION
     Route: 015
     Dates: start: 201208, end: 20121116
  2. PARAGARD 380A [Suspect]
     Route: 015
     Dates: start: 20130212, end: 20130813

REACTIONS (3)
  - Abdominal pain lower [Recovered/Resolved]
  - Pelvic discomfort [Recovered/Resolved]
  - Device expulsion [Recovered/Resolved]
